FAERS Safety Report 19239035 (Version 1)
Quarter: 2021Q2

REPORT INFORMATION
  Report Type: Report from Study
  Country: CA (occurrence: CA)
  Receive Date: 20210510
  Receipt Date: 20210510
  Transmission Date: 20210717
  Serious: Yes (Other)
  Sender: FDA-Public Use
  Company Number: CA-ACCORD-224370

PATIENT
  Age: 70 Year
  Sex: Male

DRUGS (1)
  1. EZETIMIBE. [Suspect]
     Active Substance: EZETIMIBE
     Indication: PRODUCT USED FOR UNKNOWN INDICATION

REACTIONS (5)
  - Transient ischaemic attack [Unknown]
  - Peripheral arterial occlusive disease [Unknown]
  - Angina unstable [Unknown]
  - Myocardial infarction [Unknown]
  - Coronary artery disease [Unknown]
